FAERS Safety Report 7930844-0 (Version None)
Quarter: 2011Q4

REPORT INFORMATION
  Report Type: 
  Country: None (occurrence: None)
  Receive Date: 20111117
  Receipt Date: 20111103
  Transmission Date: 20120403
  Serious: Yes (Other)
  Sender: FDA-Public Use
  Company Number: GER/UKI/11/0021339

PATIENT
  Age: 81 Year
  Sex: Female
  Weight: 55.3 kg

DRUGS (8)
  1. RAMIPRIL [Concomitant]
  2. SIMVASTATIN [Concomitant]
  3. LEVOTHYROXINE SODIUM [Concomitant]
  4. OLANZAPINE [Suspect]
     Indication: MAJOR DEPRESSION
     Dosage: ORAL
     Route: 048
     Dates: start: 20110413, end: 20110731
  5. LORAZEPAM [Concomitant]
  6. ASPIRIN [Concomitant]
  7. MIRTAZAPINE [Suspect]
     Indication: MAJOR DEPRESSION
     Dosage: ORAL
     Route: 048
     Dates: start: 20100920
  8. ZOLPIDEM [Concomitant]

REACTIONS (5)
  - ABDOMINAL PAIN [None]
  - HYPOTENSION [None]
  - SYNCOPE [None]
  - DRUG INTERACTION [None]
  - AMNESIA [None]
